FAERS Safety Report 5292407-8 (Version None)
Quarter: 2007Q2

REPORT INFORMATION
  Report Type: 
  Country: None (occurrence: None)
  Receive Date: 20070410
  Receipt Date: 20070402
  Transmission Date: 20071010
  Serious: Yes (Other)
  Sender: FDA-Public Use
  Company Number: GB-PFIZER INC-2007026633

PATIENT
  Sex: Male

DRUGS (1)
  1. EXUBERA [Suspect]
     Route: 055

REACTIONS (3)
  - BLOOD GLUCOSE INCREASED [None]
  - DYSPNOEA [None]
  - LOSS OF CONSCIOUSNESS [None]
